FAERS Safety Report 10018012 (Version 2)
Quarter: 2014Q2

REPORT INFORMATION
  Report Type: Spontaneous
  Country: CA (occurrence: CA)
  Receive Date: 20140318
  Receipt Date: 20140417
  Transmission Date: 20141212
  Serious: Yes (Other)
  Sender: FDA-Public Use
  Company Number: CA-NOVOPROD-402567

PATIENT
  Sex: Male
  Weight: 2.9 kg

DRUGS (4)
  1. TRETTEN [Suspect]
     Indication: FACTOR XIII DEFICIENCY
     Dosage: 2500 U, MONTHLY
     Route: 064
     Dates: start: 20130711
  2. RANITIDINE [Concomitant]
     Dosage: 150 MG, BID
     Route: 064
     Dates: start: 201204
  3. FOLIC ACID [Concomitant]
     Dosage: 5 MG, QD
     Route: 064
     Dates: start: 201306, end: 201401
  4. CITALOPRAM [Concomitant]
     Dosage: 10 MG, QD
     Route: 064
     Dates: start: 201107

REACTIONS (2)
  - Premature baby [Unknown]
  - Foetal exposure during pregnancy [Unknown]
